FAERS Safety Report 13581046 (Version 1)
Quarter: 2017Q2

REPORT INFORMATION
  Report Type: Spontaneous
  Country: US (occurrence: US)
  Receive Date: 20170525
  Receipt Date: 20170525
  Transmission Date: 20170830
  Serious: No
  Sender: FDA-Public Use
  Company Number: US-PFIZER INC-2017226581

PATIENT
  Age: 75 Year
  Sex: Male

DRUGS (1)
  1. VIAGRA [Suspect]
     Active Substance: SILDENAFIL CITRATE
     Indication: ERECTILE DYSFUNCTION
     Dosage: UNK(USUALLY I TAKE IT 1 HOUR TO 1 1/2 HOURS BEFORE SEXUAL ACTIVITY)

REACTIONS (2)
  - Drug ineffective [Unknown]
  - Drug effect decreased [Unknown]
